FAERS Safety Report 5642213-7 (Version None)
Quarter: 2008Q1

REPORT INFORMATION
  Report Type: 
  Country: None (occurrence: None)
  Receive Date: 20080225
  Receipt Date: 20080221
  Transmission Date: 20080703
  Serious: Yes (Disabling, Other)
  Sender: FDA-Public Use
  Company Number: 08-100

PATIENT

DRUGS (1)
  1. ALEVE [Suspect]
     Dosage: DAILY, ORAL
     Route: 048
     Dates: end: 20080211

REACTIONS (1)
  - DISABILITY [None]
